FAERS Safety Report 5466418-3 (Version None)
Quarter: 2007Q3

REPORT INFORMATION
  Report Type: 
  Country: None (occurrence: None)
  Receive Date: 20070820
  Receipt Date: 20070516
  Transmission Date: 20080115
  Serious: No
  Sender: FDA-Public Use
  Company Number: WAES 0705USA05744

PATIENT

DRUGS (1)
  1. JANUVIA [Suspect]
     Dosage: 50 MG/PO
     Route: 048

REACTIONS (3)
  - ABDOMINAL PAIN [None]
  - DRUG INEFFECTIVE [None]
  - NAUSEA [None]
